FAERS Safety Report 17801410 (Version 2)
Quarter: 2020Q2

REPORT INFORMATION
  Report Type: Spontaneous
  Country: US (occurrence: US)
  Receive Date: 20200519
  Receipt Date: 20200623
  Transmission Date: 20200714
  Serious: Yes (Hospitalization, Other)
  Sender: FDA-Public Use
  Company Number: US-DRREDDYS-USA/USA/20/0123046

PATIENT
  Age: 71 Year
  Sex: Male

DRUGS (3)
  1. MYCOPHENOLATE MOFETIL. [Suspect]
     Active Substance: MYCOPHENOLATE MOFETIL
     Indication: IMMUNOSUPPRESSANT DRUG THERAPY
     Route: 065
     Dates: start: 2008
  2. TACROLIMUS. [Suspect]
     Active Substance: TACROLIMUS
     Indication: IMMUNOSUPPRESSANT DRUG THERAPY
     Dosage: TROUGH LEVELS OF 3-5NG/ML
     Route: 065
     Dates: start: 2008
  3. PREDNISONE. [Suspect]
     Active Substance: PREDNISONE
     Indication: IMMUNOSUPPRESSANT DRUG THERAPY
     Dosage: LOW DOSE
     Route: 048
     Dates: start: 2008

REACTIONS (4)
  - Aphasia [Unknown]
  - Brain oedema [Unknown]
  - Nocardiosis [Unknown]
  - Brain abscess [Unknown]
